FAERS Safety Report 8346798-1 (Version None)
Quarter: 2012Q1

REPORT INFORMATION
  Report Type: 
  Country: None (occurrence: None)
  Receive Date: 20120315
  Receipt Date: 20110608
  Transmission Date: 20120608
  Serious: No
  Sender: FDA-Public Use
  Company Number: PHHY2011US37569

PATIENT
  Age: 64 Year
  Sex: Female
  Weight: 48.5 kg

DRUGS (21)
  1. PREMARIN [Concomitant]
  2. VITAMIN D3 (COLECALCIFEROL) CAPSULE [Concomitant]
  3. BETAMETHASONE [Suspect]
     Dosage: UNK UKN, UNK
  4. HYDROCORT (HYDROCORTISONE ACETATE) CREAM, 2.5% [Concomitant]
  5. NIFEREX (CYANOCOBALAMIN, FOLIC ACID, POLYSACCHARIDE-IRON COMPLEX) CAPS [Concomitant]
  6. GLUCOSAMINE W/CHONDROITIN (CHONDROITIN SULFATE, GLUCOSAMINE) CAPSULE [Concomitant]
  7. ULTRAM [Concomitant]
  8. CLONAZEPAM [Concomitant]
  9. TRIAMCINOLONE ACETONIDE W/NYSTATIN (NYSTATIN, TRIAMCINOLONE ACETONIDE) [Concomitant]
  10. GILENYA [Suspect]
     Indication: MULTIPLE SCLEROSIS
     Dosage: 0.5 MG, QD, ORAL
     Route: 048
     Dates: start: 20110304
  11. NEURONTIN [Concomitant]
  12. LACTULOSE [Concomitant]
  13. RENOVA [Concomitant]
  14. IMITREX (SUMATRIPTAN SUCCINATE) TABLET [Concomitant]
  15. RESTASIS (CICLOSPORIN) EMULSION, 0.05% [Concomitant]
  16. NASONEX (MOMETASONE FUROATE) SPRAY [Concomitant]
  17. COQ10 (UBIDECARENONE) CAPSULE [Concomitant]
  18. CALTRATE +D (CALCIUM CARBONATE, VITAMIN D NOS) TABLET) [Concomitant]
  19. VITAMIN B12 (CYANOCOBALAMIN) INJECTION [Concomitant]
  20. WELLBUTRIN XL [Concomitant]
  21. METHENAMINE (METHENAMINE) TABLET [Concomitant]

REACTIONS (2)
  - PAIN [None]
  - MIGRAINE [None]
